FAERS Safety Report 25757504 (Version 3)
Quarter: 2025Q4

REPORT INFORMATION
  Report Type: Spontaneous
  Country: US (occurrence: US)
  Receive Date: 20250903
  Receipt Date: 20251010
  Transmission Date: 20260118
  Serious: No
  Sender: PFIZER
  Company Number: US-PFIZER INC-202500173260

PATIENT
  Age: 78 Year
  Sex: Female
  Weight: 55.79 kg

DRUGS (16)
  1. IBRANCE [Suspect]
     Active Substance: PALBOCICLIB
     Indication: Breast cancer female
     Dosage: 125 MG, CYCLIC (TAKES 1 FOR 21 DAYS, THEN COME OFF 7 DAYS THEN, GOES TO HAVE INJECTIONS)
     Dates: start: 2019
  2. IBRANCE [Suspect]
     Active Substance: PALBOCICLIB
     Dosage: 100 MG, CYCLIC (TAKES 1 FOR 21 DAYS, THEN COME OFF 7 DAYS THEN, GOES TO HAVE INJECTIONS)
     Route: 048
     Dates: start: 2024
  3. IBRANCE [Suspect]
     Active Substance: PALBOCICLIB
     Dosage: 75 MG, CYCLIC (DAILY FOR 21 DAYS THEN 7 DAYS OFF)
     Route: 048
  4. FASLODEX [Concomitant]
     Active Substance: FULVESTRANT
     Indication: Breast cancer female
     Dosage: UNK (INJECTION EVERY 28 DAYS)
     Dates: start: 2019
  5. SERTRALINE HYDROCHLORIDE [Concomitant]
     Active Substance: SERTRALINE HYDROCHLORIDE
     Indication: Anxiety
     Dosage: 25 MG, 1X/DAY (FOR A YEAR)
     Dates: start: 2024
  6. Losartan -Hctz [Concomitant]
     Dosage: 100-12.5 MG TAB (TAKING FOR AT LEAST 5 OR 6 YEARS)
  7. LEVOTHYROXINE [Concomitant]
     Active Substance: LEVOTHYROXINE
     Dosage: 100 UG, 1X/DAY (TAKING FOR AT LEAST 5 OR 6 YEARS)
  8. MONTELUKAST SODIUM [Concomitant]
     Active Substance: MONTELUKAST SODIUM
     Indication: Hypersensitivity
     Dosage: 10 MG, 1X/DAY (TAKING FOR AT LEAST 5 OR 6 YEARS)
  9. OMEPRAZOLE [Concomitant]
     Active Substance: OMEPRAZOLE
     Indication: Gastrooesophageal reflux disease
     Dosage: 20 MG, 1X/DAY (TAKING FOR AT LEAST 5 OR 6 YEARS)
  10. Oxybutynin Cler [Concomitant]
     Indication: Pollakiuria
     Dosage: 10 MG, 1X/DAY ( ALMOST 4 YEARS)
  11. PRAVASTATIN SODIUM [Concomitant]
     Active Substance: PRAVASTATIN SODIUM
     Indication: Blood pressure abnormal
     Dosage: 40 MG, 1X/DAY (TAKING FOR 7 OR 8 YEARS)
  12. Potassium Cl-ER [Concomitant]
     Indication: Hypokalaemia
     Dosage: 2 DF, 1X/DAY (TAKING ABOUT 2 YEARS)
  13. TYLENOL PM [Concomitant]
     Active Substance: ACETAMINOPHEN\DIPHENHYDRAMINE
     Indication: Insomnia
     Dosage: 1 DF AT NIGHT
  14. CALCIUM [Concomitant]
     Active Substance: CALCIUM
     Dosage: 1200 MG
  15. FISH OIL [Concomitant]
     Active Substance: FISH OIL
     Dosage: 1000 MG, 1X/DAY
  16. VITAMIN D3 [Concomitant]
     Active Substance: CHOLECALCIFEROL
     Dosage: UNK

REACTIONS (3)
  - Nail bed inflammation [Not Recovered/Not Resolved]
  - Nail hypertrophy [Not Recovered/Not Resolved]
  - White blood cell count decreased [Unknown]

NARRATIVE: CASE EVENT DATE: 20250501
